FAERS Safety Report 4803794-6 (Version None)
Quarter: 2005Q4

REPORT INFORMATION
  Report Type: 
  Country: None (occurrence: None)
  Receive Date: 20051019
  Receipt Date: 20051017
  Transmission Date: 20060501
  Serious: Yes (Hospitalization)
  Sender: FDA-Public Use
  Company Number: DE-MERCK-0510DEU00079

PATIENT
  Age: 24 Year
  Sex: Male

DRUGS (1)
  1. PROPECIA [Suspect]
     Route: 048
     Dates: start: 20050101

REACTIONS (1)
  - PSYCHOTIC DISORDER [None]
